FAERS Safety Report 12716138 (Version 1)
Quarter: 2016Q3

REPORT INFORMATION
  Report Type: Spontaneous
  Country: US (occurrence: US)
  Receive Date: 20160906
  Receipt Date: 20160906
  Transmission Date: 20161109
  Serious: No
  Sender: FDA-Public Use
  Company Number: US-PFIZER INC-2016416620

PATIENT

DRUGS (1)
  1. NEURONTIN [Suspect]
     Active Substance: GABAPENTIN
     Dosage: 300 MG, UNK

REACTIONS (10)
  - Nightmare [Unknown]
  - Skin burning sensation [Unknown]
  - Thinking abnormal [Unknown]
  - Hyperhidrosis [Unknown]
  - Burning sensation [Unknown]
  - Influenza [Unknown]
  - Paraesthesia [Unknown]
  - Insomnia [Unknown]
  - Anger [Unknown]
  - Tearfulness [Unknown]
